FAERS Safety Report 7127980-8 (Version None)
Quarter: 2010Q4

REPORT INFORMATION
  Report Type: 
  Country: None (occurrence: None)
  Receive Date: 20101112
  Receipt Date: 20101026
  Transmission Date: 20110411
  Serious: Yes (Death, Hospitalization)
  Sender: FDA-Public Use
  Company Number: KV201000341

PATIENT
  Age: 71 Year
  Sex: Female

DRUGS (1)
  1. AMLODIPINE BESYLATE [Suspect]
     Indication: INTENTIONAL OVERDOSE
     Dosage: 135 MG, SINGLE (27 TABLETS), ORAL
     Route: 048

REACTIONS (10)
  - ANAEMIA [None]
  - BLOOD PRESSURE DECREASED [None]
  - HYPERLIPIDAEMIA [None]
  - HYPONATRAEMIA [None]
  - HYPOTENSION [None]
  - INTENTIONAL OVERDOSE [None]
  - MENTAL STATUS CHANGES [None]
  - OLIGURIA [None]
  - PULMONARY OEDEMA [None]
  - RESPIRATORY FAILURE [None]
